FAERS Safety Report 5926589-9 (Version None)
Quarter: 2008Q4

REPORT INFORMATION
  Report Type: 
  Country: None (occurrence: None)
  Receive Date: 20081017
  Receipt Date: 20081001
  Transmission Date: 20090506
  Serious: Yes (Hospitalization)
  Sender: FDA-Public Use
  Company Number: US023935

PATIENT
  Age: 75 Year
  Sex: Male
  Weight: 84 kg

DRUGS (7)
  1. ARSENIC TRIOXIDE [Suspect]
     Indication: MYELODYSPLASTIC SYNDROME
     Dosage: 25.2 MG CYCLE 1 INTRAVENOUS DRIP
     Route: 041
     Dates: start: 20080114, end: 20080117
  2. CLORFENAMINA MALEATO [Concomitant]
  3. IRBESARTAN [Concomitant]
  4. METFORMIN HYDROCHLORIDE [Concomitant]
  5. LENOGASTRIM [Concomitant]
  6. ASCORBIC ACID [Concomitant]
  7. POTASSIUM CHLORIDE [Concomitant]

REACTIONS (9)
  - ALANINE AMINOTRANSFERASE INCREASED [None]
  - ANAEMIA [None]
  - BLOOD LACTATE DEHYDROGENASE INCREASED [None]
  - CARDIAC FAILURE [None]
  - ELECTROCARDIOGRAM REPOLARISATION ABNORMALITY [None]
  - HYPOXIA [None]
  - PCO2 DECREASED [None]
  - PLATELET COUNT DECREASED [None]
  - SINUS TACHYCARDIA [None]
